FAERS Safety Report 8390406-0 (Version None)
Quarter: 2012Q2

REPORT INFORMATION
  Report Type: 
  Country: None (occurrence: None)
  Receive Date: 20120517
  Receipt Date: 20120507
  Transmission Date: 20120825
  Serious: No
  Sender: FDA-Public Use
  Company Number: B0800909A

PATIENT
  Age: 60 Year
  Sex: Female

DRUGS (1)
  1. VALTREX [Suspect]
     Indication: HERPES ZOSTER
     Dosage: 3000 MG/PER DAY/ORAL
     Route: 048

REACTIONS (5)
  - DECREASED APPETITE [None]
  - ENCEPHALOPATHY [None]
  - DYSARTHRIA [None]
  - RENAL FAILURE ACUTE [None]
  - DIZZINESS [None]
